FAERS Safety Report 10088954 (Version 2)
Quarter: 2014Q2

REPORT INFORMATION
  Report Type: Spontaneous
  Country: FR (occurrence: FR)
  Receive Date: 20140421
  Receipt Date: 20140505
  Transmission Date: 20141212
  Serious: Yes (Life-Threatening, Hospitalization)
  Sender: FDA-Public Use
  Company Number: FR-JNJFOC-20140410580

PATIENT
  Age: 33 Year
  Sex: Female

DRUGS (8)
  1. ZALDIAR [Suspect]
     Indication: VOMITING
     Route: 048
  2. ZALDIAR [Suspect]
     Indication: VOMITING
     Route: 048
     Dates: start: 20130705, end: 201307
  3. ZALDIAR [Suspect]
     Indication: DYSMENORRHOEA
     Route: 048
  4. ZALDIAR [Suspect]
     Indication: DYSMENORRHOEA
     Route: 048
     Dates: start: 20130705, end: 201307
  5. IBUPROFENE [Suspect]
     Indication: VOMITING
     Route: 048
     Dates: start: 20130705, end: 201307
  6. IBUPROFENE [Suspect]
     Indication: VOMITING
     Route: 048
  7. IBUPROFENE [Suspect]
     Indication: DYSMENORRHOEA
     Route: 048
     Dates: start: 20130705, end: 201307
  8. IBUPROFENE [Suspect]
     Indication: DYSMENORRHOEA
     Route: 048

REACTIONS (3)
  - Hepatitis fulminant [Recovered/Resolved with Sequelae]
  - Renal failure acute [Recovered/Resolved with Sequelae]
  - Overdose [Unknown]
